FAERS Safety Report 22232710 (Version 1)
Quarter: 2023Q2

REPORT INFORMATION
  Report Type: Spontaneous
  Country: None (occurrence: US)
  Receive Date: 20230420
  Receipt Date: 20230420
  Transmission Date: 20230721
  Serious: No
  Sender: FDA-Public Use
  Company Number: US-P+L Developments of Newyork Corporation-2140588

PATIENT

DRUGS (3)
  1. DOCOSANOL [Suspect]
     Active Substance: DOCOSANOL
     Indication: Oral herpes
     Route: 065
  2. DOCOSANOL [Suspect]
     Active Substance: DOCOSANOL
     Route: 065
  3. ZINC OXIDE [Suspect]
     Active Substance: ZINC OXIDE
     Route: 065

REACTIONS (1)
  - Wrong technique in product usage process [Unknown]
